FAERS Safety Report 15230902 (Version 4)
Quarter: 2018Q4

REPORT INFORMATION
  Report Type: Report from Study
  Country: US (occurrence: US)
  Receive Date: 20180802
  Receipt Date: 20181003
  Transmission Date: 20190204
  Serious: No
  Sender: FDA-Public Use
  Company Number: PHEH2018US030419

PATIENT
  Sex: Female

DRUGS (1)
  1. KISQALI [Suspect]
     Active Substance: RIBOCICLIB
     Indication: PRODUCT USED FOR UNKNOWN INDICATION
     Route: 048

REACTIONS (8)
  - Ligament sprain [Unknown]
  - Malaise [Unknown]
  - Feeding disorder [Unknown]
  - Rash [Unknown]
  - Nausea [Unknown]
  - Skin discolouration [Unknown]
  - Injury [Unknown]
  - Back pain [Unknown]
